FAERS Safety Report 5032556-2 (Version None)
Quarter: 2006Q2

REPORT INFORMATION
  Report Type: 
  Country: None (occurrence: None)
  Receive Date: 20060620
  Receipt Date: 20060602
  Transmission Date: 20061013
  Serious: Yes (Other)
  Sender: FDA-Public Use
  Company Number: 2006RR-02497

PATIENT
  Age: 56 Year
  Sex: Female

DRUGS (1)
  1. DOXYCYCLINE             (DOXYCYCLINE) [Suspect]
     Indication: PNEUMONIA ANTHRAX
     Dosage: 100 MG, BID, ORAL
     Route: 048

REACTIONS (1)
  - ABDOMINAL PAIN [None]
